FAERS Safety Report 5131157-5 (Version None)
Quarter: 2006Q3

REPORT INFORMATION
  Report Type: 
  Country: None (occurrence: None)
  Receive Date: 20060830
  Receipt Date: 20050810
  Transmission Date: 20061208
  Serious: Yes (Other)
  Sender: FDA-Public Use
  Company Number: 200511589BWH

PATIENT
  Age: 74 Year
  Sex: Female
  Weight: 45 kg

DRUGS (14)
  1. TRASYLOL [Suspect]
     Indication: AORTIC VALVE REPLACEMENT
     Dosage: SEE IMAGE
     Route: 042
     Dates: start: 20050804
  2. TRASYLOL [Suspect]
     Indication: AORTIC VALVE REPLACEMENT
     Dosage: SEE IMAGE
     Route: 042
     Dates: start: 20050804
  3. PRECEDEX [Suspect]
     Indication: SEDATION
     Dosage: INTRAVENOUS
     Route: 042
     Dates: start: 20050804
  4. HEPARIN [Concomitant]
  5. PLASMA-LYTE [ELECTROLYTES NOS] [Concomitant]
  6. MANNITOL [Concomitant]
  7. ALBUMIN (HUMAN) [Concomitant]
  8. RED BLOOD CELLS [Concomitant]
  9. FORANE [Concomitant]
  10. LASIX [Concomitant]
  11. SODIUM BICARBONATE [Concomitant]
  12. LIDOCAINE [Concomitant]
  13. LABETALOL HCL [Concomitant]
  14. CALCIUM CHLORIDE [Concomitant]

REACTIONS (2)
  - BRONCHOSPASM [None]
  - HYPERSENSITIVITY [None]
